FAERS Safety Report 8842311 (Version 1)
Quarter: 2012Q4

REPORT INFORMATION
  Report Type: Spontaneous
  Country: US (occurrence: None)
  Receive Date: 20121015
  Receipt Date: 20121015
  Transmission Date: 20130627
  Serious: Yes (Life-Threatening, Hospitalization, Other)
  Sender: FDA-Public Use
  Company Number: None

PATIENT
  Age: 59 Year
  Sex: Male
  Weight: 97.52 kg

DRUGS (2)
  1. HYDROCHLOROTHIAZIDE [Suspect]
     Indication: HYPERTENSION
     Dosage: 25mgs Daily po
     Route: 048
     Dates: start: 20120301, end: 20120911
  2. LISINOPRIL [Suspect]
     Indication: HYPERTENSION
     Dosage: 40mgs Daily po
     Route: 048
     Dates: start: 20120301, end: 20120911

REACTIONS (11)
  - Fall [None]
  - Skin discolouration [None]
  - Pancreatitis chronic [None]
  - Renal disorder [None]
  - Liver disorder [None]
  - Pneumonia [None]
  - Biliary tract disorder [None]
  - Oedema [None]
  - Bile duct obstruction [None]
  - Infection [None]
  - Pancreatic pseudocyst [None]
